FAERS Safety Report 4364863-0 (Version None)
Quarter: 2004Q2

REPORT INFORMATION
  Report Type: 
  Country: None (occurrence: None)
  Receive Date: 20040521
  Receipt Date: 20040514
  Transmission Date: 20050107
  Serious: Yes (Hospitalization)
  Sender: FDA-Public Use
  Company Number: 2004-04-0008

PATIENT
  Age: 45 Year
  Sex: Male
  Weight: 73 kg

DRUGS (8)
  1. REBETOL [Suspect]
     Indication: HEPATITIS C
     Dosage: 800 MG ORAL
     Route: 048
     Dates: start: 20030805, end: 20040119
  2. INTRON A [Suspect]
     Indication: HEPATITIS C
     Dosage: 10-6MU QD-TIW INTRAMUSCU
     Route: 030
     Dates: start: 20030805, end: 20030818
  3. INTRON A [Suspect]
     Indication: HEPATITIS C
     Dosage: 10-6MU QD-TIW INTRAMUSCU
     Route: 030
     Dates: start: 20030821, end: 20031109
  4. INTRON A [Suspect]
     Indication: HEPATITIS C
     Dosage: 10-6MU QD-TIW INTRAMUSCU
     Route: 030
     Dates: start: 20030805, end: 20040322
  5. INTRON A [Suspect]
     Indication: HEPATITIS C
     Dosage: 10-6MU QD-TIW INTRAMUSCU
     Route: 030
     Dates: start: 20031111, end: 20040322
  6. URSO [Concomitant]
  7. PROHEPARUM TABLETS [Concomitant]
  8. STOGAR (LAFUTIDINE) [Concomitant]

REACTIONS (10)
  - ASTHENIA [None]
  - BLOOD CREATINE PHOSPHOKINASE INCREASED [None]
  - DIFFICULTY IN WALKING [None]
  - ECZEMA [None]
  - MALAISE [None]
  - MYALGIA [None]
  - POLYMYOSITIS [None]
  - PRURITUS [None]
  - PYREXIA [None]
  - STOMATITIS [None]
